FAERS Safety Report 9414874 (Version 2)
Quarter: 2013Q3

REPORT INFORMATION
  Report Type: Spontaneous
  Country: US (occurrence: US)
  Receive Date: 20130723
  Receipt Date: 20130731
  Transmission Date: 20140515
  Serious: Yes (Other)
  Sender: FDA-Public Use
  Company Number: US-009507513-1307USA009739

PATIENT
  Age: 81 Year
  Sex: Male

DRUGS (1)
  1. SYLATRON [Suspect]
     Indication: NEOPLASM MALIGNANT
     Dosage: 1 SHOT ,QW, INJECTION
     Dates: start: 201202, end: 201207

REACTIONS (5)
  - Neoplasm recurrence [Unknown]
  - Influenza [Recovering/Resolving]
  - Adverse reaction [Recovering/Resolving]
  - Malaise [Recovering/Resolving]
  - Wrong technique in drug usage process [Unknown]
